FAERS Safety Report 5613625-2 (Version None)
Quarter: 2008Q1

REPORT INFORMATION
  Report Type: 
  Country: None (occurrence: None)
  Receive Date: 20080129
  Receipt Date: 20080121
  Transmission Date: 20080703
  Serious: Yes (Death)
  Sender: FDA-Public Use
  Company Number: 163-21880-07121197

PATIENT
  Age: 75 Year
  Sex: Female

DRUGS (2)
  1. REVLIMID [Suspect]
     Indication: MULTIPLE MYELOMA
     Dosage: 15 MG, QD, ORAL; 25 MG, QD, ORAL
     Route: 048
     Dates: start: 20070517
  2. REVLIMID [Suspect]
     Indication: MULTIPLE MYELOMA
     Dosage: 15 MG, QD, ORAL; 25 MG, QD, ORAL
     Route: 048
     Dates: start: 20070626

REACTIONS (4)
  - CONSTIPATION [None]
  - FATIGUE [None]
  - PERFORMANCE STATUS DECREASED [None]
  - WEIGHT DECREASED [None]
